FAERS Safety Report 26011893 (Version 1)
Quarter: 2025Q4

REPORT INFORMATION
  Report Type: Spontaneous
  Country: US (occurrence: None)
  Receive Date: 20251107
  Receipt Date: 20251107
  Transmission Date: 20260117
  Serious: Yes (Hospitalization)
  Sender: FDA-CTU
  Company Number: None

PATIENT
  Age: 60 Year
  Sex: Female

DRUGS (12)
  1. KESIMPTA [Suspect]
     Active Substance: OFATUMUMAB
     Indication: Multiple sclerosis
     Dosage: OTHER FREQUENCY : MONTHLY;?
     Route: 058
     Dates: start: 20241015
  2. DILANTIN [Concomitant]
     Active Substance: PHENYTOIN
  3. SULFACETAMIDE [Concomitant]
     Active Substance: SULFACETAMIDE
  4. DALFAMPRIDINE [Concomitant]
     Active Substance: DALFAMPRIDINE
  5. METOPROLOL SUCCINATE [Concomitant]
     Active Substance: METOPROLOL SUCCINATE
  6. LASIX [Concomitant]
     Active Substance: FUROSEMIDE
  7. BACLOFEN [Concomitant]
     Active Substance: BACLOFEN
  8. OMEPRAZOLE [Concomitant]
     Active Substance: OMEPRAZOLE
  9. ELIQUIS [Concomitant]
     Active Substance: APIXABAN
  10. AMLODIPINE BESYLATE [Concomitant]
     Active Substance: AMLODIPINE BESYLATE
  11. VITAMIN B12 [Concomitant]
     Active Substance: CYANOCOBALAMIN
  12. MOTRIN IB [Concomitant]
     Active Substance: IBUPROFEN

REACTIONS (8)
  - Multiple sclerosis [None]
  - Pneumonia [None]
  - Pulmonary embolism [None]
  - Loss of consciousness [None]
  - Headache [None]
  - Dizziness [None]
  - Confusional state [None]
  - Nausea [None]

NARRATIVE: CASE EVENT DATE: 20251028
